FAERS Safety Report 16950930 (Version 1)
Quarter: 2019Q4

REPORT INFORMATION
  Report Type: Spontaneous
  Country: US (occurrence: US)
  Receive Date: 20190903
  Receipt Date: 20190903
  Transmission Date: 20200122
  Serious: Yes (Hospitalization)
  Sender: FDA-Public Use
  Company Number: None

PATIENT
  Age: 71 Year
  Sex: Male

DRUGS (2)
  1. LORAZEPAM. [Suspect]
     Active Substance: LORAZEPAM
     Indication: MAGNETIC RESONANCE IMAGING
     Dosage: ?          OTHER DOSE:.75 ML;?
     Route: 042
     Dates: start: 20190822, end: 20190822
  2. LORAZEPAM. [Suspect]
     Active Substance: LORAZEPAM
     Indication: SEDATIVE THERAPY
     Dosage: ?          OTHER DOSE:.75 ML;?
     Route: 042
     Dates: start: 20190822, end: 20190822

REACTIONS (1)
  - Mental status changes [None]

NARRATIVE: CASE EVENT DATE: 20190822
